FAERS Safety Report 12771029 (Version 2)
Quarter: 2016Q4

REPORT INFORMATION
  Report Type: Spontaneous
  Country: US (occurrence: US)
  Receive Date: 20160922
  Receipt Date: 20161004
  Transmission Date: 20170207
  Serious: No
  Sender: FDA-Public Use
  Company Number: US-GLAXOSMITHKLINE-US2016GSK138314

PATIENT
  Sex: Female

DRUGS (1)
  1. BUPROPION. [Suspect]
     Active Substance: BUPROPION
     Indication: LIBIDO DECREASED
     Dosage: UNK MG, UNK

REACTIONS (7)
  - Headache [Unknown]
  - Libido increased [Unknown]
  - Product use issue [Unknown]
  - Off label use [Unknown]
  - Irritability [Recovered/Resolved]
  - Wrong technique in product usage process [Unknown]
  - Therapeutic response unexpected [Unknown]
